FAERS Safety Report 9540533 (Version 6)
Quarter: 2014Q4

REPORT INFORMATION
  Report Type: Spontaneous
  Country: BR (occurrence: BR)
  Receive Date: 20130920
  Receipt Date: 20141023
  Transmission Date: 20150529
  Serious: Yes (Hospitalization, Other)
  Sender: FDA-Public Use
  Company Number: BR-PFIZER INC-2013251906

PATIENT
  Age: 44 Year
  Sex: Female
  Weight: 53 kg

DRUGS (5)
  1. PRIMOSISTON [Concomitant]
  2. SUTENT [Suspect]
     Active Substance: SUNITINIB MALATE
     Indication: METASTATIC RENAL CELL CARCINOMA
     Dosage: 50 MG, CYCLIC ONCE DAILY, CYCLE 4 PER 2
     Route: 048
     Dates: start: 20130822
  3. VITAMIN C [Concomitant]
     Active Substance: ASCORBIC ACID
     Dosage: UNK
  4. BUSCOPAN COMPOSITUM [Concomitant]
     Dosage: UNK
  5. FERROUS SULFATE [Concomitant]
     Active Substance: FERROUS SULFATE\FERROUS SULFATE, DRIED
     Dosage: UNK

REACTIONS (26)
  - Disease progression [Unknown]
  - Back pain [Unknown]
  - Discomfort [Unknown]
  - Feeling hot [Not Recovered/Not Resolved]
  - Mouth injury [Not Recovered/Not Resolved]
  - Chapped lips [Not Recovered/Not Resolved]
  - Anaemia [Unknown]
  - Eye pruritus [Not Recovered/Not Resolved]
  - Hair colour changes [Unknown]
  - Blood pressure decreased [Unknown]
  - Yellow skin [Not Recovered/Not Resolved]
  - Metastatic renal cell carcinoma [Unknown]
  - Musculoskeletal pain [Unknown]
  - Erythema [Not Recovered/Not Resolved]
  - Oral discomfort [Not Recovered/Not Resolved]
  - Bone pain [Unknown]
  - Eye swelling [Not Recovered/Not Resolved]
  - Hot flush [Unknown]
  - Oral pain [Not Recovered/Not Resolved]
  - Swelling face [Not Recovered/Not Resolved]
  - Pain [Unknown]
  - Goitre [Unknown]
  - Vaginal haemorrhage [Not Recovered/Not Resolved]
  - Alopecia [Not Recovered/Not Resolved]
  - Oedema mouth [Not Recovered/Not Resolved]
  - Menorrhagia [Unknown]

NARRATIVE: CASE EVENT DATE: 2013
